FAERS Safety Report 8814433 (Version 2)
Quarter: 2012Q4

REPORT INFORMATION
  Report Type: Spontaneous
  Country: US (occurrence: None)
  Receive Date: 20120925
  Receipt Date: 20121220
  Transmission Date: 20130627
  Serious: Yes (Death)
  Sender: FDA-Public Use
  Company Number: 2012-264

PATIENT
  Age: 50 Year
  Sex: Female
  Weight: 31.7 kg

DRUGS (1)
  1. PRIALT [Suspect]
     Indication: CANCER PAIN
     Dosage: once/hour, intrathecal
     Route: 037
     Dates: start: 20120125

REACTIONS (3)
  - Breast cancer metastatic [None]
  - Hip fracture [None]
  - Oropharyngeal cancer [None]
